FAERS Safety Report 17680256 (Version 1)
Quarter: 2020Q2

REPORT INFORMATION
  Report Type: Spontaneous
  Country: US (occurrence: US)
  Receive Date: 20200417
  Receipt Date: 20200417
  Transmission Date: 20200714
  Serious: Yes (Other)
  Sender: FDA-Public Use
  Company Number: None

PATIENT
  Age: 84 Year
  Sex: Male
  Weight: 71.7 kg

DRUGS (1)
  1. GAMUNEX-C [Suspect]
     Active Substance: HUMAN IMMUNOGLOBULIN G
     Indication: MYASTHENIA GRAVIS
     Dosage: ?          OTHER FREQUENCY:EVERY 3 WEEKS;?
     Route: 041
     Dates: start: 20200415, end: 20200415

REACTIONS (3)
  - Heart rate increased [None]
  - Atrial fibrillation [None]
  - Infusion related reaction [None]

NARRATIVE: CASE EVENT DATE: 20200415
